FAERS Safety Report 4620873-7 (Version None)
Quarter: 2005Q1

REPORT INFORMATION
  Report Type: 
  Country: None (occurrence: None)
  Receive Date: 20050325
  Receipt Date: 20050318
  Transmission Date: 20050727
  Serious: Yes (Death, Hospitalization)
  Sender: FDA-Public Use
  Company Number: 2004-02-1419

PATIENT
  Age: 44 Year
  Sex: Male

DRUGS (2)
  1. PEG-INTRON [Suspect]
     Indication: HEPATITIS C
     Dosage: 150 MCG QW
     Dates: start: 20021008
  2. REBETOL [Suspect]
     Indication: HEPATITIS C
     Dosage: 1000 MG QD
     Dates: start: 20021008

REACTIONS (6)
  - ASCITES [None]
  - DISEASE PROGRESSION [None]
  - HEPATIC CIRRHOSIS [None]
  - HEPATIC FAILURE [None]
  - PERITONITIS BACTERIAL [None]
  - WHITE BLOOD CELL COUNT DECREASED [None]
